FAERS Safety Report 8202278-5 (Version None)
Quarter: 2012Q1

REPORT INFORMATION
  Report Type: 
  Country: None (occurrence: None)
  Receive Date: 20120308
  Receipt Date: 20120227
  Transmission Date: 20120608
  Serious: Yes (Death)
  Sender: FDA-Public Use
  Company Number: TPA2012A01113

PATIENT
  Sex: Male

DRUGS (1)
  1. ACTOS [Suspect]
     Dosage: 30 MG, 1 IN 1 D,  PER ORAL
     Route: 048

REACTIONS (1)
  - BLADDER CANCER [None]
